FAERS Safety Report 5371285-2 (Version None)
Quarter: 2007Q2

REPORT INFORMATION
  Report Type: 
  Country: None (occurrence: None)
  Receive Date: 20070615
  Receipt Date: 20070228
  Transmission Date: 20071010
  Serious: Yes (Other)
  Sender: FDA-Public Use
  Company Number: 200618675US

PATIENT
  Age: 48 Year
  Sex: Female

DRUGS (8)
  1. LANTUS [Suspect]
     Indication: DIABETES MELLITUS NON-INSULIN-DEPENDENT
     Dosage: 10 U QD
     Dates: start: 20061016
  2. OPTICLIK [Suspect]
     Indication: DIABETES MELLITUS NON-INSULIN-DEPENDENT
     Dates: start: 20061001
  3. GLYCONIAZIDE (GLURONAZID) [Concomitant]
  4. TAMOXIFEN CITRATE [Concomitant]
  5. BENAZEPRIL HYDROCHLORIDE [Concomitant]
  6. BUPROPION HCL [Concomitant]
  7. CITALOPRAM HYDROBROMIDE (CELEXA /00582602/) [Concomitant]
  8. ASPIRIN [Concomitant]

REACTIONS (1)
  - HYPERGLYCAEMIA [None]
